FAERS Safety Report 7066154-6 (Version None)
Quarter: 2010Q4

REPORT INFORMATION
  Report Type: 
  Country: None (occurrence: None)
  Receive Date: 20101027
  Receipt Date: 20100827
  Transmission Date: 20110411
  Serious: Yes (Other)
  Sender: FDA-Public Use
  Company Number: HQWYE591626AUG04

PATIENT
  Sex: Female
  Weight: 54.48 kg

DRUGS (10)
  1. PREMPRO [Suspect]
     Indication: HORMONE REPLACEMENT THERAPY
  2. MEDROXYPROGESTERONE [Suspect]
  3. ESTRADIOL [Suspect]
  4. PROMETRIUM [Suspect]
  5. ESTRACE [Suspect]
  6. ETODOLAC [Concomitant]
  7. LEVOTHYROXINE [Concomitant]
  8. LEVOTHYROXINE SODIUM [Concomitant]
  9. FEMHRT [Suspect]
  10. PROVERA [Suspect]

REACTIONS (1)
  - BREAST CANCER [None]
